FAERS Safety Report 9862199 (Version 2)
Quarter: 2014Q1

REPORT INFORMATION
  Report Type: Spontaneous
  Country: US (occurrence: US)
  Receive Date: 20140203
  Receipt Date: 20140219
  Transmission Date: 20141002
  Serious: Yes (Death, Hospitalization, Other)
  Sender: FDA-Public Use
  Company Number: US-ASTELLAS-2014US001006

PATIENT
  Age: 71 Year
  Sex: Male

DRUGS (3)
  1. XTANDI [Suspect]
     Indication: PROSTATE CANCER
     Dosage: 160 MG, UID/QD
     Route: 048
     Dates: start: 20130831, end: 20131222
  2. METFORMIN [Concomitant]
     Indication: PRODUCT USED FOR UNKNOWN INDICATION
     Dosage: 500 MG, BID
     Route: 065
  3. AVODART [Concomitant]
     Indication: PRODUCT USED FOR UNKNOWN INDICATION
     Dosage: 0.5 MG, UID/QD
     Route: 065

REACTIONS (8)
  - Respiratory distress [Fatal]
  - Cardiac failure [Unknown]
  - Mental status changes [Not Recovered/Not Resolved]
  - Bradycardia [Not Recovered/Not Resolved]
  - Hypotension [Not Recovered/Not Resolved]
  - Prostate cancer metastatic [Unknown]
  - Oedema peripheral [Not Recovered/Not Resolved]
  - Arteriosclerosis coronary artery [Fatal]
